FAERS Safety Report 9848389 (Version 1)
Quarter: 2014Q1

REPORT INFORMATION
  Report Type: Spontaneous
  Country: US (occurrence: None)
  Receive Date: 20140122
  Receipt Date: 20140122
  Transmission Date: 20141002
  Serious: Yes (Other)
  Sender: FDA-Public Use
  Company Number: B0959157A

PATIENT
  Sex: Female

DRUGS (7)
  1. CLONAZEPAM [Suspect]
     Route: 048
  2. FLUOXETINE [Suspect]
     Route: 048
  3. IBUPROFEN [Suspect]
     Route: 048
  4. VALTREX [Suspect]
     Route: 048
  5. TRAZODONE [Suspect]
     Route: 048
  6. CITALOPRAM [Suspect]
     Route: 048
  7. ETHANOL [Suspect]
     Route: 048

REACTIONS (1)
  - Completed suicide [None]
